FAERS Safety Report 9368507 (Version 1)
Quarter: 2013Q2

REPORT INFORMATION
  Report Type: Spontaneous
  Country: US (occurrence: US)
  Receive Date: 20130625
  Receipt Date: 20130625
  Transmission Date: 20140414
  Serious: No
  Sender: FDA-Public Use
  Company Number: US-ASTELLAS-2012US012880

PATIENT
  Sex: Female
  Weight: 68 kg

DRUGS (5)
  1. VESICARE [Suspect]
     Indication: HYPERTONIC BLADDER
     Dosage: 5 MG, UID/QD
     Route: 048
  2. VESICARE [Suspect]
     Dosage: 10 MG, UID/QD
     Route: 048
  3. ALPHA                              /00454801/ [Concomitant]
     Indication: CHONDROPATHY
     Dosage: UNK
     Route: 065
  4. CARDIZEM                           /00489701/ [Concomitant]
     Indication: BLOOD PRESSURE
     Dosage: UNK
     Route: 065
  5. LIPITOR [Concomitant]
     Indication: BLOOD CHOLESTEROL
     Dosage: UNK
     Route: 065

REACTIONS (2)
  - Constipation [Unknown]
  - Gastrooesophageal reflux disease [Unknown]
